FAERS Safety Report 8141588-7 (Version None)
Quarter: 2012Q1

REPORT INFORMATION
  Report Type: 
  Country: None (occurrence: None)
  Receive Date: 20120103
  Receipt Date: 20111024
  Transmission Date: 20120608
  Serious: No
  Sender: FDA-Public Use
  Company Number: AE-2011-002628

PATIENT
  Age: 61 Year
  Sex: Female
  Weight: 82.5547 kg

DRUGS (5)
  1. PEGINTERFERON (PEGINTERFERON ALFA-2A) [Concomitant]
  2. RIBAVIRIN [Concomitant]
  3. SYNTHROID (LEVOTHYROID SODIUM) [Concomitant]
  4. INCIVEK [Suspect]
     Dosage: 2250 MG (750 MG,1 IN 8 HR),ORAL
     Route: 048
     Dates: start: 20110719, end: 20111021
  5. METFORMIN HCL [Concomitant]

REACTIONS (4)
  - HAEMATOCRIT DECREASED [None]
  - ANAL PRURITUS [None]
  - INJECTION SITE PRURITUS [None]
  - PRURITUS [None]
